FAERS Safety Report 14152877 (Version 2)
Quarter: 2017Q4

REPORT INFORMATION
  Report Type: Spontaneous
  Country: ES (occurrence: ES)
  Receive Date: 20171102
  Receipt Date: 20171205
  Transmission Date: 20180321
  Serious: Yes (Death, Other)
  Sender: FDA-Public Use
  Company Number: ES-GILEAD-2017-0302378

PATIENT

DRUGS (3)
  1. ACICLOVIR [Concomitant]
     Active Substance: ACYCLOVIR
     Indication: PROPHYLAXIS
  2. ZYDELIG [Suspect]
     Active Substance: IDELALISIB
     Indication: CHRONIC LYMPHOCYTIC LEUKAEMIA
     Route: 065
  3. SEPTRIN [Concomitant]
     Active Substance: SULFAMETHOXAZOLE\TRIMETHOPRIM
     Indication: PROPHYLAXIS

REACTIONS (9)
  - Cardiac failure [Unknown]
  - Diarrhoea [Unknown]
  - Death [Fatal]
  - Organising pneumonia [Unknown]
  - Pneumococcal sepsis [Unknown]
  - Infectious disease carrier [Unknown]
  - Perineal ulceration [Unknown]
  - Neurological decompensation [Unknown]
  - Cytomegalovirus infection [Unknown]
